FAERS Safety Report 8941827 (Version 1)
Quarter: 2012Q4

REPORT INFORMATION
  Report Type: 
  Country: US (occurrence: US)
  Receive Date: 20121203
  Receipt Date: 20121203
  Transmission Date: 20130627
  Serious: Yes (Hospitalization)
  Sender: FDA-Public Use
  Company Number: US-BAYER-2012-125679

PATIENT
  Age: 21 Year
  Sex: Female

DRUGS (13)
  1. YASMIN [Suspect]
  2. CEPHALEXIN [Concomitant]
     Dosage: 500 mg, UNK
  3. GFN/PSE [Concomitant]
  4. PANLOR SS [Concomitant]
  5. HYDROCODONE W/APAP [Concomitant]
     Dosage: 7.5/750
  6. DIFLUCAN [Concomitant]
     Dosage: 150 mg, UNK
  7. CLARITIN-D 24 HOUR [Concomitant]
  8. AMOXICILLIN [Concomitant]
     Dosage: 500 mg, UNK
  9. IMITREX [Concomitant]
     Dosage: 100 mg, UNK
  10. METRONIDAZOLE [Concomitant]
     Dosage: 500 mg, UNK
  11. SKELAXIN [Concomitant]
     Dosage: 400 mg, UNK
  12. INDOMETHACIN [Concomitant]
     Dosage: 50 mg, UNK
  13. Z-PAK [Concomitant]
     Dosage: 250 mg, UNK

REACTIONS (1)
  - Deep vein thrombosis [None]
